FAERS Safety Report 15693714 (Version 1)
Quarter: 2018Q4

REPORT INFORMATION
  Report Type: Spontaneous
  Country: NG (occurrence: NG)
  Receive Date: 20181206
  Receipt Date: 20181206
  Transmission Date: 20190205
  Serious: Yes (Hospitalization)
  Sender: FDA-Public Use
  Company Number: NG-ROCHE-2225398

PATIENT
  Age: 61 Year
  Sex: Female

DRUGS (2)
  1. HERCEPTIN [Suspect]
     Active Substance: TRASTUZUMAB
     Indication: PRODUCT USED FOR UNKNOWN INDICATION
     Route: 065
  2. DOCETAXEL. [Concomitant]
     Active Substance: DOCETAXEL

REACTIONS (2)
  - Diarrhoea [Unknown]
  - Shock [Unknown]
